FAERS Safety Report 13368185 (Version 2)
Quarter: 2017Q2

REPORT INFORMATION
  Report Type: Spontaneous
  Country: US (occurrence: US)
  Receive Date: 20170324
  Receipt Date: 20170421
  Transmission Date: 20170830
  Serious: Yes (Other)
  Sender: FDA-Public Use
  Company Number: US-WEST-WARD PHARMACEUTICALS CORP.-US-H14001-17-00466

PATIENT
  Sex: Female

DRUGS (10)
  1. PREDNISONE. [Suspect]
     Active Substance: PREDNISONE
     Route: 065
  2. RADIOACTIVE IODINE [Concomitant]
     Active Substance: SODIUM IODIDE I-131
     Indication: PRODUCT USED FOR UNKNOWN INDICATION
     Route: 065
     Dates: start: 199212
  3. VALIUM [Concomitant]
     Active Substance: DIAZEPAM
     Indication: PRODUCT USED FOR UNKNOWN INDICATION
     Route: 065
  4. SYNTHROID [Concomitant]
     Active Substance: LEVOTHYROXINE SODIUM
     Indication: PRODUCT USED FOR UNKNOWN INDICATION
     Route: 065
  5. PROGRAF [Suspect]
     Active Substance: TACROLIMUS\TACROLIMUS ANHYDROUS
     Indication: RENAL TRANSPLANT
     Route: 065
     Dates: start: 201207
  6. PRAVASTATIN. [Suspect]
     Active Substance: PRAVASTATIN
     Indication: BLOOD CHOLESTEROL INCREASED
     Route: 065
  7. MYCOPHENOLATE MOFETIL TABLETS [Suspect]
     Active Substance: MYCOPHENOLATE MOFETIL
     Route: 065
  8. MYCOPHENOLATE MOFETIL TABLETS [Suspect]
     Active Substance: MYCOPHENOLATE MOFETIL
     Indication: RENAL TRANSPLANT
     Route: 065
     Dates: start: 201207
  9. PROGRAF [Suspect]
     Active Substance: TACROLIMUS\TACROLIMUS ANHYDROUS
     Route: 065
  10. PREDNISONE. [Suspect]
     Active Substance: PREDNISONE
     Indication: RENAL TRANSPLANT
     Route: 065
     Dates: start: 201207

REACTIONS (15)
  - Poor peripheral circulation [Unknown]
  - Diabetes mellitus [Recovered/Resolved]
  - Precancerous skin lesion [Not Recovered/Not Resolved]
  - Hypertrichosis [Unknown]
  - Incorrect product storage [Unknown]
  - Hyperkeratosis [Not Recovered/Not Resolved]
  - Arteriovenous fistula site complication [Unknown]
  - Nightmare [Unknown]
  - Haematocrit increased [Unknown]
  - Blood cholesterol increased [Recovered/Resolved]
  - Skin ulcer [Unknown]
  - Weight decreased [Not Recovered/Not Resolved]
  - Drug administration error [Unknown]
  - Intra-abdominal haemorrhage [Unknown]
  - Restlessness [Unknown]

NARRATIVE: CASE EVENT DATE: 20170321
